FAERS Safety Report 9520373 (Version 1)
Quarter: 2013Q3

REPORT INFORMATION
  Report Type: Spontaneous
  Country: US (occurrence: US)
  Receive Date: 20130912
  Receipt Date: 20130912
  Transmission Date: 20140515
  Serious: Yes (Other)
  Sender: FDA-Public Use
  Company Number: US-B.I. PHARMACEUTICALS,INC./RIDGEFIELD-2013-BI-28073BP

PATIENT
  Age: 78 Year
  Sex: Female

DRUGS (4)
  1. SPIRIVA [Suspect]
     Indication: CHRONIC OBSTRUCTIVE PULMONARY DISEASE
     Dosage: 18 MCG
     Route: 048
     Dates: start: 2010
  2. PLAVIX [Concomitant]
     Indication: ANTICOAGULANT THERAPY
     Route: 048
  3. PANTOPRAZOLE [Concomitant]
  4. DILTIAZEM [Concomitant]
     Indication: HYPERTENSION
     Route: 048

REACTIONS (2)
  - Lung carcinoma cell type unspecified recurrent [Not Recovered/Not Resolved]
  - Incorrect route of drug administration [Recovered/Resolved]
